FAERS Safety Report 23276505 (Version 1)
Quarter: 2023Q4

REPORT INFORMATION
  Report Type: Spontaneous
  Country: US (occurrence: US)
  Receive Date: 20231208
  Receipt Date: 20231208
  Transmission Date: 20240109
  Serious: No
  Sender: FDA-Public Use
  Company Number: US-ABBVIE-5522413

PATIENT
  Sex: Male

DRUGS (2)
  1. DUOPA [Suspect]
     Active Substance: CARBIDOPA\LEVODOPA
     Indication: Product used for unknown indication
     Dosage: CONTINUOUS DOSE ON THE PUMP WAS LOWERED
     Route: 050
  2. DUOPA [Suspect]
     Active Substance: CARBIDOPA\LEVODOPA

REACTIONS (2)
  - Migraine [Not Recovered/Not Resolved]
  - Dyskinesia [Not Recovered/Not Resolved]
